FAERS Safety Report 20942056 (Version 1)
Quarter: 2022Q2

REPORT INFORMATION
  Report Type: Spontaneous
  Country: IN (occurrence: IN)
  Receive Date: 20220610
  Receipt Date: 20220610
  Transmission Date: 20220720
  Serious: Yes (Hospitalization)
  Sender: FDA-Public Use
  Company Number: IN-STRIDES ARCOLAB LIMITED-2022SP006779

PATIENT
  Age: 56 Year
  Sex: Male

DRUGS (2)
  1. DISULFIRAM [Suspect]
     Active Substance: DISULFIRAM
     Indication: Alcoholism
     Dosage: 250 MILLIGRAM
     Route: 048
  2. DISULFIRAM [Suspect]
     Active Substance: DISULFIRAM
     Dosage: 250 MILLIGRAM
     Route: 065

REACTIONS (2)
  - Subendocardial ischaemia [Recovered/Resolved]
  - Self-medication [Unknown]
